FAERS Safety Report 4276770-2 (Version None)
Quarter: 2004Q1

REPORT INFORMATION
  Report Type: 
  Country: None (occurrence: None)
  Receive Date: 20040120
  Receipt Date: 20040106
  Transmission Date: 20041129
  Serious: Yes (Hospitalization)
  Sender: FDA-Public Use
  Company Number: 04P-075-0246909-00

PATIENT
  Age: 61 Year
  Sex: Male

DRUGS (21)
  1. WARFARIN (WARFARIN SODIUM) [Suspect]
     Indication: ATRIAL FIBRILLATION
     Dosage: SEE IMAGE
     Route: 048
     Dates: start: 20000801, end: 20020220
  2. WARFARIN (WARFARIN SODIUM) [Suspect]
     Indication: RHEUMATIC HEART DISEASE
     Dosage: SEE IMAGE
     Route: 048
     Dates: start: 20000801, end: 20020220
  3. WARFARIN (WARFARIN SODIUM) [Suspect]
     Indication: ATRIAL FIBRILLATION
     Dosage: SEE IMAGE
     Route: 048
     Dates: start: 20020220, end: 20020715
  4. WARFARIN (WARFARIN SODIUM) [Suspect]
     Indication: RHEUMATIC HEART DISEASE
     Dosage: SEE IMAGE
     Route: 048
     Dates: start: 20020220, end: 20020715
  5. WARFARIN (WARFARIN SODIUM) [Suspect]
     Indication: ATRIAL FIBRILLATION
     Dosage: SEE IMAGE
     Route: 048
     Dates: start: 20020220, end: 20020716
  6. WARFARIN (WARFARIN SODIUM) [Suspect]
     Indication: RHEUMATIC HEART DISEASE
     Dosage: SEE IMAGE
     Route: 048
     Dates: start: 20020220, end: 20020716
  7. WARFARIN (WARFARIN SODIUM) [Suspect]
     Indication: ATRIAL FIBRILLATION
     Dosage: SEE IMAGE
     Route: 048
     Dates: start: 20020720, end: 20020729
  8. WARFARIN (WARFARIN SODIUM) [Suspect]
     Indication: RHEUMATIC HEART DISEASE
     Dosage: SEE IMAGE
     Route: 048
     Dates: start: 20020720, end: 20020729
  9. WARFARIN (WARFARIN SODIUM) [Suspect]
     Indication: ATRIAL FIBRILLATION
     Dosage: SEE IMAGE
     Route: 048
     Dates: start: 20020720, end: 20020729
  10. WARFARIN (WARFARIN SODIUM) [Suspect]
     Indication: RHEUMATIC HEART DISEASE
     Dosage: SEE IMAGE
     Route: 048
     Dates: start: 20020720, end: 20020729
  11. WARFARIN (WARFARIN SODIUM) [Suspect]
     Indication: ATRIAL FIBRILLATION
     Dosage: SEE IMAGE
     Route: 048
     Dates: start: 20020803
  12. WARFARIN (WARFARIN SODIUM) [Suspect]
     Indication: RHEUMATIC HEART DISEASE
     Dosage: SEE IMAGE
     Route: 048
     Dates: start: 20020803
  13. QUILINGGAO [Suspect]
     Dosage: 1 IN 1 D, PER ORAL
     Route: 048
     Dates: start: 19990101, end: 20020716
  14. QUILINGGAO [Suspect]
     Dosage: 1 IN 1 D, PER ORAL
     Route: 048
     Dates: start: 20020726, end: 20020729
  15. DIGOXIN [Concomitant]
  16. SIMVASTATIN [Concomitant]
  17. FUROSEMIDE [Concomitant]
  18. POTASSIUM [Concomitant]
  19. COLCHICINE [Concomitant]
  20. APOREX [Concomitant]
  21. DEXTROPROPOXYPHENE [Concomitant]

REACTIONS (7)
  - CONTUSION [None]
  - DRUG INTERACTION [None]
  - EPISTAXIS [None]
  - GINGIVAL BLEEDING [None]
  - GOUT [None]
  - HYPOKALAEMIA [None]
  - INTERNATIONAL NORMALISED RATIO INCREASED [None]
